FAERS Safety Report 8405819-8 (Version None)
Quarter: 2012Q2

REPORT INFORMATION
  Report Type: 
  Country: None (occurrence: None)
  Receive Date: 20120604
  Receipt Date: 20120529
  Transmission Date: 20120825
  Serious: No
  Sender: FDA-Public Use
  Company Number: US-PFIZER INC-2012129250

PATIENT
  Sex: Male
  Weight: 72.5 kg

DRUGS (9)
  1. MAGIC MOUTHWASH [Suspect]
  2. GLIPIZIDE [Concomitant]
     Indication: DIABETES MELLITUS
     Dosage: 10 MG, 2X/DAY
  3. LANTUS [Concomitant]
     Indication: DIABETES MELLITUS
     Dosage: 5-12 UNITS DAILY
  4. VITAMIN B-12 [Concomitant]
     Indication: RENAL DISORDER
     Dosage: 2500 UG, DAILY
  5. VITAMIN D [Concomitant]
     Indication: RENAL DISORDER
     Dosage: 1000 IU, 2X/DAY
  6. SUTENT [Suspect]
     Indication: NEUROENDOCRINE TUMOUR
     Dosage: 25 MG, DAILY
     Dates: start: 20110901
  7. MAGIC MOUTHWASH [Suspect]
     Indication: ORAL DISCOMFORT
     Dosage: FIVE TO SIX TIMES A DAY
     Dates: start: 20120501
  8. MAGIC MOUTHWASH [Suspect]
     Indication: THROAT IRRITATION
  9. ALLOPURINOL [Concomitant]
     Indication: RENAL DISORDER
     Dosage: 300 MG, 1X/DAY

REACTIONS (8)
  - DRY MOUTH [None]
  - GINGIVAL PAIN [None]
  - THROAT IRRITATION [None]
  - EXPIRED DRUG ADMINISTERED [None]
  - DYSPHAGIA [None]
  - DRUG INEFFECTIVE [None]
  - WEIGHT DECREASED [None]
  - ORAL DISCOMFORT [None]
